FAERS Safety Report 18425465 (Version 7)
Quarter: 2021Q2

REPORT INFORMATION
  Report Type: Other
  Country: DE (occurrence: DE)
  Receive Date: 20201026
  Receipt Date: 20210513
  Transmission Date: 20210717
  Serious: Yes (Hospitalization, Other)
  Sender: FDA-Public Use
  Company Number: DE-ROCHE-2562874

PATIENT
  Age: 24 Year
  Sex: Female

DRUGS (15)
  1. OCREVUS [Suspect]
     Active Substance: OCRELIZUMAB
     Route: 042
     Dates: start: 202101
  2. VITAMIN B6 [Concomitant]
     Active Substance: PYRIDOXINE HYDROCHLORIDE
  3. SELENIUM [Concomitant]
     Active Substance: SELENIUM
  4. OCREVUS [Suspect]
     Active Substance: OCRELIZUMAB
     Indication: RELAPSING-REMITTING MULTIPLE SCLEROSIS
     Route: 042
     Dates: start: 20191216
  5. OCREVUS [Suspect]
     Active Substance: OCRELIZUMAB
     Route: 042
  6. IRON [Concomitant]
     Active Substance: IRON
  7. FOLIC ACID. [Concomitant]
     Active Substance: FOLIC ACID
  8. CALCIUM [Concomitant]
     Active Substance: CALCIUM
  9. OCREVUS [Suspect]
     Active Substance: OCRELIZUMAB
     Route: 042
     Dates: start: 202007
  10. VITAMIN K2 [Concomitant]
     Active Substance: MENAQUINONE 6
  11. FRANKINCENSE [Concomitant]
  12. MIRTAZAPINE. [Concomitant]
     Active Substance: MIRTAZAPINE
     Dosage: AS REQUIRED AT NIGHT
  13. VITAMIN C [Concomitant]
     Active Substance: ASCORBIC ACID
  14. COMIRNATY [Suspect]
     Active Substance: TOZINAMERAN
     Indication: COVID-19 IMMUNISATION
     Route: 065
     Dates: start: 20210408
  15. ZINC. [Concomitant]
     Active Substance: ZINC

REACTIONS (11)
  - SARS-CoV-2 antibody test negative [Not Recovered/Not Resolved]
  - COVID-19 [Recovered/Resolved]
  - Fatigue [Recovered/Resolved]
  - Asthma [Not Recovered/Not Resolved]
  - Cough [Recovered/Resolved]
  - International normalised ratio increased [Recovered/Resolved]
  - Body temperature increased [Recovered/Resolved]
  - Fatigue [Recovered/Resolved]
  - Chest pain [Recovered/Resolved]
  - Alopecia [Recovered/Resolved]
  - Headache [Recovered/Resolved]

NARRATIVE: CASE EVENT DATE: 20200219
